FAERS Safety Report 19098190 (Version 1)
Quarter: 2021Q2

REPORT INFORMATION
  Report Type: Spontaneous
  Country: ES (occurrence: ES)
  Receive Date: 20210406
  Receipt Date: 20210406
  Transmission Date: 20210717
  Serious: Yes (Hospitalization)
  Sender: FDA-Public Use
  Company Number: ES-MDD US OPERATIONS-E2B_00003730

PATIENT
  Age: 74 Year
  Sex: Male

DRUGS (8)
  1. BUDESONIDE. [Concomitant]
     Active Substance: BUDESONIDE
     Indication: BRONCHITIS
     Dosage: NOT PROVIDED
  2. MADOPAR [Concomitant]
     Active Substance: BENSERAZIDE HYDROCHLORIDE\LEVODOPA
     Indication: PARKINSON^S DISEASE
     Dosage: 1 DF EACH OF 100/50 MG QID (EVERY 6 HOURS)
  3. OMEPRAZOLE                         /00661201/ [Concomitant]
     Indication: GASTRIC DISORDER
     Route: 048
  4. PARACETAMOL [Concomitant]
     Active Substance: ACETAMINOPHEN
     Indication: PAIN
     Route: 048
  5. CLOPIDOGREL [Concomitant]
     Active Substance: CLOPIDOGREL BISULFATE
     Indication: ANGINA PECTORIS
     Route: 048
     Dates: start: 20200619
  6. MINITRAN [Concomitant]
     Active Substance: NITROGLYCERIN
     Indication: ANGINA PECTORIS
     Route: 062
     Dates: start: 20200619
  7. XADAGO [Suspect]
     Active Substance: SAFINAMIDE MESYLATE
     Indication: PARKINSON^S DISEASE
     Route: 048
     Dates: start: 20200714
  8. BISOPROLOL [Concomitant]
     Active Substance: BISOPROLOL
     Indication: ANGINA PECTORIS
     Route: 048
     Dates: start: 20200619

REACTIONS (1)
  - Angina unstable [Recovered/Resolved]

NARRATIVE: CASE EVENT DATE: 20200714
